FAERS Safety Report 8054780-7 (Version None)
Quarter: 2012Q1

REPORT INFORMATION
  Report Type: 
  Country: None (occurrence: None)
  Receive Date: 20120112
  Receipt Date: 20120110
  Transmission Date: 20120608
  Serious: Yes (Hospitalization)
  Sender: FDA-Public Use
  Company Number: SP05452

PATIENT
  Age: 64 Year
  Sex: Male

DRUGS (2)
  1. PRAVASTATIN [Concomitant]
  2. OSMOPREP [Suspect]
     Indication: BOWEL PREPARATION
     Dosage: (32 TABLETS), ORAL
     Route: 048
     Dates: start: 20111201, end: 20111201

REACTIONS (4)
  - LOSS OF CONSCIOUSNESS [None]
  - HYPONATRAEMIA [None]
  - RENAL FAILURE ACUTE [None]
  - MALAISE [None]
